FAERS Safety Report 11350408 (Version 19)
Quarter: 2018Q4

REPORT INFORMATION
  Report Type: Report from Study
  Country: CA (occurrence: CA)
  Receive Date: 20150807
  Receipt Date: 20181116
  Transmission Date: 20190204
  Serious: Yes (Hospitalization, Other)
  Sender: FDA-Public Use
  Company Number: PHHY2014CA018498

PATIENT
  Age: 57 Year
  Sex: Female

DRUGS (6)
  1. PROLIA [Concomitant]
     Active Substance: DENOSUMAB
     Indication: OSTEOPOROSIS
     Dosage: EVERY 6 MONTHS
     Route: 058
     Dates: start: 20150526
  2. SANDOSTATIN LAR DEPOT [Suspect]
     Active Substance: OCTREOTIDE ACETATE
     Indication: GASTROINTESTINAL HYPOMOTILITY
     Dosage: 30 MG, QMO
     Route: 030
     Dates: start: 20140110
  3. SANDOSTATIN LAR DEPOT [Suspect]
     Active Substance: OCTREOTIDE ACETATE
     Dosage: 30 MG, QMO
     Route: 030
     Dates: start: 20161003
  4. CODEINE PHOSPHATE [Suspect]
     Active Substance: CODEINE PHOSPHATE
     Indication: PRODUCT USED FOR UNKNOWN INDICATION
     Route: 065
  5. ALENDRONATE [Concomitant]
     Active Substance: ALENDRONATE SODIUM
     Indication: OSTEOPOROSIS
     Route: 065
  6. SANDOSTATIN [Suspect]
     Active Substance: OCTREOTIDE ACETATE
     Indication: INTESTINAL PSEUDO-OBSTRUCTION
     Dosage: 150 UG, TID
     Route: 058
     Dates: start: 20131220, end: 20140111

REACTIONS (36)
  - Bowel movement irregularity [Unknown]
  - Groin pain [Unknown]
  - Blood pressure diastolic increased [Unknown]
  - Dysphagia [Unknown]
  - Product quality issue [Unknown]
  - Dizziness [Unknown]
  - Injection site pain [Unknown]
  - Faecal vomiting [Unknown]
  - Diarrhoea [Unknown]
  - Body temperature decreased [Unknown]
  - Vomiting [Recovered/Resolved]
  - Flatulence [Unknown]
  - Pain [Unknown]
  - Headache [Unknown]
  - Nasopharyngitis [Not Recovered/Not Resolved]
  - Rhinorrhoea [Not Recovered/Not Resolved]
  - Stress [Unknown]
  - Vomiting [Recovered/Resolved]
  - Fatigue [Unknown]
  - Abnormal faeces [Unknown]
  - Nausea [Unknown]
  - Malaise [Recovering/Resolving]
  - Product use in unapproved indication [Unknown]
  - Faeces soft [Unknown]
  - Diarrhoea [Recovered/Resolved]
  - Needle issue [Unknown]
  - Intestinal obstruction [Recovered/Resolved]
  - Intestinal obstruction [Recovered/Resolved]
  - Tooth abscess [Recovered/Resolved]
  - Throat irritation [Not Recovered/Not Resolved]
  - Sneezing [Not Recovered/Not Resolved]
  - Vomiting [Unknown]
  - Blood pressure increased [Unknown]
  - Discomfort [Unknown]
  - Nasal congestion [Unknown]
  - Asthenia [Recovering/Resolving]

NARRATIVE: CASE EVENT DATE: 20131220
